FAERS Safety Report 18881272 (Version 1)
Quarter: 2021Q1

REPORT INFORMATION
  Report Type: Spontaneous
  Country: PL (occurrence: PL)
  Receive Date: 20210212
  Receipt Date: 20210212
  Transmission Date: 20210420
  Serious: Yes (Other)
  Sender: FDA-Public Use
  Company Number: PL-JNJFOC-20210218262

PATIENT
  Age: 64 Year
  Weight: 62 kg

DRUGS (1)
  1. SPORANOX [Suspect]
     Active Substance: ITRACONAZOLE
     Indication: ONYCHOMYCOSIS
     Route: 048
     Dates: start: 20170805, end: 20170806

REACTIONS (5)
  - Affective disorder [Recovering/Resolving]
  - Sleep disorder [Recovering/Resolving]
  - Liver disorder [Recovering/Resolving]
  - Hypoacusis [Recovering/Resolving]
  - Fatigue [Recovering/Resolving]
